FAERS Safety Report 4458848-3 (Version None)
Quarter: 2004Q3

REPORT INFORMATION
  Report Type: 
  Country: None (occurrence: None)
  Receive Date: 20040923
  Receipt Date: 20040923
  Transmission Date: 20050211
  Serious: No
  Sender: FDA-Public Use
  Company Number: None

PATIENT
  Age: 47 Year
  Sex: Female

DRUGS (2)
  1. CARISOPRODOL [Suspect]
     Dosage: ONCE BID
     Dates: start: 20040201
  2. AMITRIPTYLINE HCL [Concomitant]

REACTIONS (4)
  - ARTHRALGIA [None]
  - CHEST DISCOMFORT [None]
  - NECK PAIN [None]
  - PALPITATIONS [None]
